FAERS Safety Report 9066450 (Version 1)
Quarter: 2013Q1

REPORT INFORMATION
  Report Type: Report from Study
  Country: NL (occurrence: NL)
  Receive Date: 20130214
  Receipt Date: 20130214
  Transmission Date: 20140127
  Serious: Yes (Death, Hospitalization, Other)
  Sender: FDA-Public Use
  Company Number: NL-ROCHE-1188803

PATIENT
  Sex: 0

DRUGS (2)
  1. BEVACIZUMAB [Suspect]
     Indication: GLIOMA
     Route: 042
  2. TEMOZOLOMIDE [Suspect]
     Indication: GLIOMA
     Route: 048

REACTIONS (3)
  - Death [Fatal]
  - Tumour haemorrhage [Unknown]
  - Pulmonary embolism [Unknown]
